FAERS Safety Report 25733124 (Version 1)
Quarter: 2025Q3

REPORT INFORMATION
  Report Type: Spontaneous
  Country: US (occurrence: US)
  Receive Date: 20250828
  Receipt Date: 20250828
  Transmission Date: 20251020
  Serious: No
  Sender: CIPLA
  Company Number: US-CIPLA LTD.-2025US10455

PATIENT

DRUGS (2)
  1. BUDESONIDE [Suspect]
     Active Substance: BUDESONIDE
     Indication: Chronic obstructive pulmonary disease
     Dosage: UNK, BID (ONCE IN THE MORNING AND ONCE AT NIGHT) (STRENGTH: 0.5MG/2ML)
     Route: 065
     Dates: start: 2023
  2. BUDESONIDE [Suspect]
     Active Substance: BUDESONIDE
     Indication: Emphysema
     Dosage: UNK, BID (ONCE IN THE MORNING AND ONCE AT NIGHT) (STRENGTH: 0.5MG/2ML)
     Route: 065
     Dates: start: 20250809

REACTIONS (3)
  - Recalled product administered [Unknown]
  - Recalled product [Unknown]
  - Off label use [Unknown]

NARRATIVE: CASE EVENT DATE: 20250809
